FAERS Safety Report 22192829 (Version 9)
Quarter: 2024Q2

REPORT INFORMATION
  Report Type: Report from Study
  Country: US (occurrence: US)
  Receive Date: 20230410
  Receipt Date: 20240410
  Transmission Date: 20240715
  Serious: Yes (Hospitalization, Other)
  Sender: FDA-Public Use
  Company Number: US-XERIS PHARMACEUTICALS-2022XER00035

PATIENT
  Sex: Female
  Weight: 86.168 kg

DRUGS (18)
  1. KEVEYIS [Suspect]
     Active Substance: DICHLORPHENAMIDE
     Indication: Paralysis
     Dosage: ONE TABLET (50 MG), 3X/DAY
     Route: 048
     Dates: start: 2017
  2. KEVEYIS [Suspect]
     Active Substance: DICHLORPHENAMIDE
     Indication: Hyperkalaemia
     Dosage: ONE TABLET (50 MG), 3X/DAY
     Route: 048
  3. KEVEYIS [Suspect]
     Active Substance: DICHLORPHENAMIDE
     Dosage: ONE TABLET (50 MG), 3X/DAY
     Route: 048
  4. KEVEYIS [Suspect]
     Active Substance: DICHLORPHENAMIDE
     Dosage: ONE TABLET (50 MG), 3X/DAY
     Route: 048
  5. KEVEYIS [Suspect]
     Active Substance: DICHLORPHENAMIDE
     Dosage: ONE TABLET (50 MG), 3X/DAY
     Route: 048
  6. KEVEYIS [Suspect]
     Active Substance: DICHLORPHENAMIDE
     Dosage: ONE TABLET (50 MG), 3X/DAY
     Route: 048
  7. KEVEYIS [Suspect]
     Active Substance: DICHLORPHENAMIDE
     Dosage: ONE TABLET (50 MG), 3X/DAY
     Route: 048
  8. KEVEYIS [Suspect]
     Active Substance: DICHLORPHENAMIDE
     Dosage: ONE TABLET (50 MG), 3X/DAY
     Route: 048
  9. KEVEYIS [Suspect]
     Active Substance: DICHLORPHENAMIDE
     Dosage: ONE TABLET (50 MG), 3X/DAY
     Route: 048
  10. PFIZER-BIONTECH COVID-19 VACCINE [Suspect]
     Active Substance: TOZINAMERAN
  11. CANNABIS SATIVA SUBSP. INDICA TOP [Suspect]
     Active Substance: CANNABIS SATIVA SUBSP. INDICA TOP
  12. UNSPECIFIED DAILY VITAMINS [Concomitant]
  13. VITAMIN D [Concomitant]
     Active Substance: VITAMIN D NOS
  14. GARLIC [Concomitant]
     Active Substance: GARLIC
  15. FISH OIL [Concomitant]
     Active Substance: FISH OIL
  16. VITAMIN C [Concomitant]
     Active Substance: ASCORBIC ACID
  17. COLLAGEN [Concomitant]
     Active Substance: COLLAGEN
  18. METOPROLOL [Concomitant]
     Active Substance: METOPROLOL
     Dosage: 25 MG, 1X/DAY AT 8AM IN THE MORNING

REACTIONS (37)
  - Hospitalisation [Recovered/Resolved]
  - Laboratory test abnormal [Not Recovered/Not Resolved]
  - Neuropathy peripheral [Not Recovered/Not Resolved]
  - Disease progression [Not Recovered/Not Resolved]
  - Paraesthesia [Not Recovered/Not Resolved]
  - Ulcer [Recovered/Resolved]
  - Sinus disorder [Recovered/Resolved]
  - Peripheral coldness [Not Recovered/Not Resolved]
  - COVID-19 [Recovered/Resolved]
  - Hypokinesia [Recovered/Resolved]
  - Asthenia [Not Recovered/Not Resolved]
  - Muscular weakness [Recovered/Resolved]
  - Pain [Not Recovered/Not Resolved]
  - Ear infection [Unknown]
  - Pharyngitis [Unknown]
  - Pneumonia [Recovered/Resolved]
  - Muscle strain [Unknown]
  - Stress [Unknown]
  - Hypersensitivity [Recovered/Resolved]
  - Insomnia [Not Recovered/Not Resolved]
  - Illness [Unknown]
  - Myotonia [Not Recovered/Not Resolved]
  - Myalgia [Unknown]
  - Dysphagia [Not Recovered/Not Resolved]
  - Posture abnormal [Not Recovered/Not Resolved]
  - Muscle atrophy [Not Recovered/Not Resolved]
  - Gait disturbance [Not Recovered/Not Resolved]
  - Speech disorder [Not Recovered/Not Resolved]
  - Peripheral swelling [Not Recovered/Not Resolved]
  - Hypotonia [Not Recovered/Not Resolved]
  - Muscle tightness [Not Recovered/Not Resolved]
  - Paralysis [Not Recovered/Not Resolved]
  - Hypokalaemia [Recovered/Resolved]
  - Fatigue [Unknown]
  - Dyspnoea [Not Recovered/Not Resolved]
  - Hypoaesthesia [Not Recovered/Not Resolved]
  - Unevaluable event [Unknown]

NARRATIVE: CASE EVENT DATE: 20220101
